FAERS Safety Report 9345534 (Version 1)
Quarter: 2013Q2

REPORT INFORMATION
  Report Type: Spontaneous
  Country: GB (occurrence: GB)
  Receive Date: 20130613
  Receipt Date: 20130613
  Transmission Date: 20140414
  Serious: Yes (Other)
  Sender: FDA-Public Use
  Company Number: GB-009507513-1306GBR001768

PATIENT
  Age: 19 Year
  Sex: Female
  Weight: 78 kg

DRUGS (6)
  1. NEXPLANON [Suspect]
     Dosage: UNK
     Route: 059
     Dates: start: 20130325
  2. CERAZETTE [Concomitant]
     Dosage: UNK
     Route: 048
     Dates: start: 20121210
  3. FLOXACILLIN [Concomitant]
     Dosage: UNK
     Dates: start: 20130510, end: 20130517
  4. LIDOCAINE HYDROCHLORIDE [Concomitant]
     Dosage: UNK
     Dates: start: 20130516, end: 20130517
  5. LIDOCAINE HYDROCHLORIDE [Concomitant]
     Dosage: UNK
     Dates: start: 20130325, end: 20130326
  6. MICROGYNON [Concomitant]
     Dosage: UNK
     Dates: start: 20130515

REACTIONS (5)
  - Blister [Recovering/Resolving]
  - Contusion [Recovering/Resolving]
  - Skin disorder [Not Recovered/Not Resolved]
  - Application site pruritus [Not Recovered/Not Resolved]
  - Implant site erythema [Not Recovered/Not Resolved]
